FAERS Safety Report 8408285-1 (Version None)
Quarter: 2012Q2

REPORT INFORMATION
  Report Type: 
  Country: None (occurrence: None)
  Receive Date: 20120604
  Receipt Date: 20120531
  Transmission Date: 20120825
  Serious: Yes (Other)
  Sender: FDA-Public Use
  Company Number: US-BAYER-2012-054490

PATIENT
  Age: 50 Year
  Sex: Female

DRUGS (3)
  1. MAGNEVIST [Suspect]
     Indication: NUCLEAR MAGNETIC RESONANCE IMAGING
     Dosage: 20 ML, ONCE
     Dates: start: 20120518, end: 20120518
  2. MAGNEVIST [Suspect]
     Indication: RENAL MASS
  3. MAGNEVIST [Suspect]
     Indication: BLOOD URINE PRESENT

REACTIONS (2)
  - FORMICATION [None]
  - PRURITUS GENERALISED [None]
